FAERS Safety Report 8289308-X (Version None)
Quarter: 2012Q2

REPORT INFORMATION
  Report Type: 
  Country: None (occurrence: None)
  Receive Date: 20120417
  Receipt Date: 20120413
  Transmission Date: 20120825
  Serious: Yes (Other)
  Sender: FDA-Public Use
  Company Number: PHHY2012NL024795

PATIENT

DRUGS (1)
  1. GLEEVEC [Suspect]

REACTIONS (2)
  - MACULAR DEGENERATION [None]
  - RETINAL HAEMORRHAGE [None]
